FAERS Safety Report 5449152-5 (Version None)
Quarter: 2007Q3

REPORT INFORMATION
  Report Type: 
  Country: None (occurrence: None)
  Receive Date: 20070911
  Receipt Date: 20070830
  Transmission Date: 20080115
  Serious: Yes (Other)
  Sender: FDA-Public Use
  Company Number: NL-GILEAD-2007-0013247

PATIENT
  Age: 42 Year
  Sex: Male

DRUGS (5)
  1. VIREAD [Suspect]
     Indication: HIV INFECTION
     Dates: start: 20020801
  2. EPIVIR [Concomitant]
     Indication: HIV INFECTION
  3. DELAVIRDINE [Concomitant]
     Indication: HIV INFECTION
  4. FOSAMPRENAVIR [Concomitant]
     Indication: HIV INFECTION
  5. RITONAVIR [Concomitant]
     Indication: HIV INFECTION

REACTIONS (6)
  - FANCONI SYNDROME ACQUIRED [None]
  - FEMUR FRACTURE [None]
  - OSTEOMALACIA [None]
  - OSTEONECROSIS [None]
  - OSTEOSCLEROSIS [None]
  - PAIN IN EXTREMITY [None]
